FAERS Safety Report 4396224-2 (Version None)
Quarter: 2004Q2

REPORT INFORMATION
  Report Type: 
  Country: None (occurrence: None)
  Receive Date: 20040621
  Receipt Date: 20031121
  Transmission Date: 20050107
  Serious: Yes (Death, Other)
  Sender: FDA-Public Use
  Company Number: USA-2003-0010966

PATIENT
  Age: 40 Year
  Sex: Female
  Weight: 52.6 kg

DRUGS (6)
  1. OXYCONTIN [Suspect]
  2. HYDROCODONE BITARTRATE [Suspect]
  3. ALCOHOL (ETHANOL) [Suspect]
  4. NICOTINE [Suspect]
  5. CAFFEINE (CAFFEINE) [Suspect]
  6. QUININE (QUININE) [Suspect]

REACTIONS (3)
  - ACCIDENTAL OVERDOSE [None]
  - DRUG ABUSER [None]
  - MULTIPLE DRUG OVERDOSE [None]
